FAERS Safety Report 9769329 (Version 1)
Quarter: 2013Q4

REPORT INFORMATION
  Report Type: Spontaneous
  Country: FR (occurrence: None)
  Receive Date: 20131125
  Receipt Date: 20131125
  Transmission Date: 20140711
  Serious: Yes (Other)
  Sender: FDA-Public Use
  Company Number: None

PATIENT
  Age: 19 Year
  Sex: Male

DRUGS (2)
  1. HEMOSOL B0 [Suspect]
     Indication: DIALYSIS
     Dates: start: 20130319, end: 20130320
  2. MULTIBIC K2 [Suspect]

REACTIONS (5)
  - Hypocalcaemia [None]
  - Hypokalaemia [None]
  - Wrong drug administered [None]
  - Acute respiratory distress syndrome [None]
  - Renal failure acute [None]
